FAERS Safety Report 11707672 (Version 1)
Quarter: 2015Q4

REPORT INFORMATION
  Report Type: Spontaneous
  Country: GB (occurrence: GB)
  Receive Date: 20151106
  Receipt Date: 20151106
  Transmission Date: 20160304
  Serious: Yes (Hospitalization)
  Sender: FDA-Public Use
  Company Number: GB-ASTRAZENECA-2015SF05620

PATIENT
  Age: 91 Year
  Sex: Male
  Weight: 80 kg

DRUGS (1)
  1. CASODEX [Suspect]
     Active Substance: BICALUTAMIDE
     Indication: PROSTATE CANCER
     Route: 048
     Dates: start: 20151014

REACTIONS (1)
  - Diabetes with hyperosmolarity [Recovering/Resolving]

NARRATIVE: CASE EVENT DATE: 20151018
